FAERS Safety Report 7241065-1 (Version None)
Quarter: 2011Q1

REPORT INFORMATION
  Report Type: 
  Country: None (occurrence: None)
  Receive Date: 20110124
  Receipt Date: 20110113
  Transmission Date: 20110831
  Serious: Yes (Other)
  Sender: FDA-Public Use
  Company Number: US-PFIZER INC-2011012235

PATIENT
  Sex: Male

DRUGS (2)
  1. ATIVAN [Suspect]
  2. GEODON [Suspect]
     Indication: DELIRIUM
     Dosage: 40 MG, UNK
     Route: 030

REACTIONS (3)
  - SINUS TACHYCARDIA [None]
  - VENTRICULAR TACHYCARDIA [None]
  - CARDIO-RESPIRATORY ARREST [None]
